FAERS Safety Report 12001183 (Version 1)
Quarter: 2016Q1

REPORT INFORMATION
  Report Type: Other
  Country: GB (occurrence: GB)
  Receive Date: 20160204
  Receipt Date: 20160204
  Transmission Date: 20160526
  Serious: Yes (Life-Threatening, Other)
  Sender: FDA-Public Use
  Company Number: GB-MYLANLABS-2016M1003779

PATIENT

DRUGS (6)
  1. OMEPRAZOLE. [Suspect]
     Active Substance: OMEPRAZOLE
     Indication: ABDOMINAL HERNIA
     Dosage: 1 DF, QD
     Route: 048
  2. AMITRIPTYLINE [Suspect]
     Active Substance: AMITRIPTYLINE
     Indication: PAIN
     Dosage: 25 MG, BID (ONE IN THE MORNING AND ONE AT NIGHT)
     Route: 048
  3. NAPROXEN. [Suspect]
     Active Substance: NAPROXEN
     Indication: PAIN
     Dosage: 4 DF, QD
     Route: 048
  4. LAXIDO                             /06401201/ [Suspect]
     Active Substance: POLYETHYLENE GLYCOL 3350\POTASSIUM CHLORIDE\SODIUM BICARBONATE\SODIUM CHLORIDE
     Indication: CONSTIPATION
     Dosage: 1 DF, QD
     Route: 048
  5. DIHYDROCODEINE TARTRATE/PARACETAMOL [Suspect]
     Active Substance: ACETAMINOPHEN\DIHYDROCODEINE BITARTRATE
     Indication: PAIN
     Dosage: 8 DF, QD
     Route: 048
  6. SERTRALINE [Suspect]
     Active Substance: SERTRALINE HYDROCHLORIDE
     Indication: DEPRESSION
     Dosage: 1 DF, QD
     Route: 048

REACTIONS (9)
  - Balance disorder [Unknown]
  - Abnormal behaviour [Unknown]
  - Pain [Unknown]
  - Memory impairment [Unknown]
  - Constipation [Unknown]
  - Dysuria [Unknown]
  - Confusional state [Unknown]
  - Depressed mood [Unknown]
  - Drug interaction [Unknown]
